FAERS Safety Report 19142243 (Version 2)
Quarter: 2021Q2

REPORT INFORMATION
  Report Type: Spontaneous
  Country: FI (occurrence: FI)
  Receive Date: 20210416
  Receipt Date: 20210422
  Transmission Date: 20210717
  Serious: Yes (Death)
  Sender: FDA-Public Use
  Company Number: FI-ALVOGEN-2021-ALVOGEN-116855

PATIENT
  Age: 14 Year
  Sex: Female

DRUGS (20)
  1. MEROPENEM. [Suspect]
     Active Substance: MEROPENEM
     Indication: PYREXIA
  2. CEFTAZIDIME. [Suspect]
     Active Substance: CEFTAZIDIME
     Indication: OPHTHALMIC HERPES ZOSTER
  3. NETILMYCIN SULFATE [Suspect]
     Active Substance: NETILMICIN SULFATE
     Indication: OPHTHALMIC HERPES ZOSTER
  4. NOREPINEPHRINE. [Concomitant]
     Active Substance: NOREPINEPHRINE
     Indication: HYPOTENSION
  5. ETOPOSIDE. [Concomitant]
     Active Substance: ETOPOSIDE
     Indication: BONE MARROW CONDITIONING REGIMEN
  6. AMPHOTERICIN B. [Suspect]
     Active Substance: AMPHOTERICIN B
     Indication: MUCORMYCOSIS
  7. AMPHOTERICIN B/LIPOSOME [Suspect]
     Active Substance: AMPHOTERICIN B
     Indication: EVIDENCE BASED TREATMENT
     Dosage: 5 MG/KG, DAILY (ADDED ON DAY 18 ); INTRAVENOUS
     Route: 042
  8. METHOTREXATE SODIUM. [Concomitant]
     Active Substance: METHOTREXATE SODIUM
     Indication: PROPHYLAXIS AGAINST GRAFT VERSUS HOST DISEASE
  9. CYCLOPHOSPHAMIDE. [Concomitant]
     Active Substance: CYCLOPHOSPHAMIDE
     Indication: BONE MARROW CONDITIONING REGIMEN
  10. CLINDAMYCIN. [Suspect]
     Active Substance: CLINDAMYCIN
     Indication: PYREXIA
  11. VORICONAZOLE. [Suspect]
     Active Substance: VORICONAZOLE
     Indication: EVIDENCE BASED TREATMENT
     Dosage: 14 MG/KG, DAILY (ADDED ON DAY 17)
     Route: 042
  12. ACICLOVIR [Suspect]
     Active Substance: ACYCLOVIR
     Indication: OPHTHALMIC HERPES ZOSTER
  13. GANCICLOVIR. [Suspect]
     Active Substance: GANCICLOVIR
     Indication: KERATITIS FUNGAL
  14. TEICOPLANIN [Suspect]
     Active Substance: TEICOPLANIN
     Indication: OPHTHALMIC HERPES ZOSTER
  15. MYCOPHENOLATE MOFETIL HYDROCHLORIDE [Concomitant]
     Active Substance: MYCOPHENOLATE MOFETIL HYDROCHLORIDE
     Indication: PROPHYLAXIS AGAINST GRAFT VERSUS HOST DISEASE
  16. DOBUTAMINE [Concomitant]
     Active Substance: DOBUTAMINE HYDROCHLORIDE
     Indication: HYPOTENSION
  17. CASPOFUNGIN [Suspect]
     Active Substance: CASPOFUNGIN
     Indication: EVIDENCE BASED TREATMENT
     Dosage: 50 MG/KG, DAILY (FROM DAY 4 TO DAY 17);
     Route: 042
  18. FLUCONAZOLE. [Suspect]
     Active Substance: FLUCONAZOLE
     Indication: ANTIFUNGAL PROPHYLAXIS
  19. VANCOMYCIN [Suspect]
     Active Substance: VANCOMYCIN
     Indication: OPHTHALMIC HERPES ZOSTER
  20. AZTREONAM. [Suspect]
     Active Substance: AZTREONAM
     Indication: PRODUCT USED FOR UNKNOWN INDICATION

REACTIONS (2)
  - Off label use [Fatal]
  - Drug ineffective for unapproved indication [Fatal]
